FAERS Safety Report 4955362-3 (Version None)
Quarter: 2006Q1

REPORT INFORMATION
  Report Type: 
  Country: None (occurrence: None)
  Receive Date: 20060328
  Receipt Date: 20051017
  Transmission Date: 20060701
  Serious: Yes (Other)
  Sender: FDA-Public Use
  Company Number: PHNU2005DE03469

PATIENT
  Age: 14 Year
  Sex: Female
  Weight: 43.5 kg

DRUGS (5)
  1. AZATHIOPRINE [Suspect]
     Indication: CROHN'S DISEASE
     Dosage: 125MG/DAY
     Route: 048
     Dates: start: 20030101
  2. OMEPRAZOLE [Concomitant]
     Indication: CROHN'S DISEASE
     Dosage: 40,G/DAY
     Route: 048
     Dates: start: 20030101
  3. DECORTIN-H [Suspect]
     Indication: CROHN'S DISEASE
     Dosage: 12.5MG/DAY
     Route: 048
     Dates: start: 20030101
  4. ENTOCORT ENEMA [Concomitant]
     Indication: CROHN'S DISEASE
     Dates: start: 20030101
  5. SANDIMMUNE [Suspect]
     Indication: CROHN'S DISEASE
     Dosage: 250MG/DAY
     Dates: start: 20050830

REACTIONS (2)
  - HERPES ZOSTER [None]
  - PARESIS [None]
